FAERS Safety Report 12167560 (Version 3)
Quarter: 2016Q1

REPORT INFORMATION
  Report Type: Spontaneous
  Country: US (occurrence: US)
  Receive Date: 20160310
  Receipt Date: 20160325
  Transmission Date: 20160526
  Serious: No
  Sender: FDA-Public Use
  Company Number: US-GLAXOSMITHKLINE-US2016GSK034269

PATIENT
  Sex: Male

DRUGS (4)
  1. LITHIUM. [Concomitant]
     Active Substance: LITHIUM
     Dosage: 300 MG, QD
  2. WELLBUTRIN SR [Suspect]
     Active Substance: BUPROPION HYDROCHLORIDE
     Indication: BIPOLAR DISORDER
     Dosage: 150 MG, UNK
  3. BUPROPION SR PROLONGED-RELEASE TABLET [Suspect]
     Active Substance: BUPROPION
     Indication: BIPOLAR DISORDER
     Dosage: 150 MG, QD
  4. BUPROPION HYDROCHLORIDE. [Suspect]
     Active Substance: BUPROPION HYDROCHLORIDE
     Indication: BIPOLAR DISORDER

REACTIONS (10)
  - Insomnia [Unknown]
  - Nausea [Unknown]
  - Constipation [Unknown]
  - Irritability [Unknown]
  - Anxiety [Unknown]
  - Mood swings [Unknown]
  - Disturbance in attention [Unknown]
  - Agitation [Unknown]
  - Withdrawal syndrome [Unknown]
  - Depression [Unknown]
